FAERS Safety Report 21994151 (Version 3)
Quarter: 2023Q2

REPORT INFORMATION
  Report Type: Report from Study
  Country: US (occurrence: US)
  Receive Date: 20230215
  Receipt Date: 20230629
  Transmission Date: 20230722
  Serious: Yes (Other)
  Sender: FDA-Public Use
  Company Number: US-UCBSA-2023007107

PATIENT
  Age: 15 Year
  Sex: Male

DRUGS (3)
  1. FINTEPLA [Suspect]
     Active Substance: FENFLURAMINE
     Indication: Lennox-Gastaut syndrome
     Dosage: 2 MILLILITER, 2X/DAY (BID)
  2. FINTEPLA [Suspect]
     Active Substance: FENFLURAMINE
     Dosage: 6 MILLIGRAM, 2X/DAY (BID)
  3. FINTEPLA [Suspect]
     Active Substance: FENFLURAMINE
     Dosage: 2 MILLILITER, 2X/DAY (BID)
     Dates: start: 20230110, end: 20230627

REACTIONS (3)
  - Blepharospasm [Not Recovered/Not Resolved]
  - Tremor [Not Recovered/Not Resolved]
  - Drug ineffective [Unknown]

NARRATIVE: CASE EVENT DATE: 20230203
